FAERS Safety Report 23603887 (Version 1)
Quarter: 2024Q1

REPORT INFORMATION
  Report Type: Spontaneous
  Country: US (occurrence: US)
  Receive Date: 20240307
  Receipt Date: 20240307
  Transmission Date: 20240409
  Serious: No
  Sender: FDA-Public Use
  Company Number: US-HALEON-USCH2024012270

PATIENT

DRUGS (2)
  1. ADVIL PM (DIPHENHYDRAMINE CITRATE\IBUPROFEN) [Suspect]
     Active Substance: DIPHENHYDRAMINE CITRATE\IBUPROFEN
     Indication: Insomnia
     Dosage: 2 DF, QD (2 TABLETS BEFORE BEDTIME)
  2. ADVIL PM (DIPHENHYDRAMINE CITRATE\IBUPROFEN) [Suspect]
     Active Substance: DIPHENHYDRAMINE CITRATE\IBUPROFEN
     Dosage: 1 DF, QD (1 TABLET BEFORE BEDTIME)

REACTIONS (3)
  - Somnolence [Unknown]
  - Product use in unapproved indication [Unknown]
  - Drug effective for unapproved indication [Unknown]
